FAERS Safety Report 11149314 (Version 6)
Quarter: 2015Q2

REPORT INFORMATION
  Report Type: Spontaneous
  Country: US (occurrence: US)
  Receive Date: 20150529
  Receipt Date: 20150617
  Transmission Date: 20150821
  Serious: Yes (Death, Hospitalization, Other)
  Sender: FDA-Public Use
  Company Number: US-ASTRAZENECA-2014SE49355

PATIENT
  Age: 22399 Day
  Sex: Female
  Weight: 93.5 kg

DRUGS (13)
  1. VICODIN [Concomitant]
     Active Substance: ACETAMINOPHEN\HYDROCODONE BITARTRATE
     Indication: PAIN
     Dosage: 1DF=5-500MG TABS  AS NECESSARY; INTERMITTENT
     Route: 048
  2. ALLOPURINOL. [Concomitant]
     Active Substance: ALLOPURINOL
     Route: 048
  3. GABAPENTIN. [Concomitant]
     Active Substance: GABAPENTIN
     Route: 048
  4. HUMALOG [Concomitant]
     Active Substance: INSULIN LISPRO
     Dosage: HUMALOG 100 UNIT/ML  1DF=37 UNITS THREE TIMES A DAY
     Route: 058
  5. TRIAMTERENE+ HYDROCHLOROTHIAZIDE [Concomitant]
     Dosage: 1DF=37.5-25 MG CAPS; TWO TIMES A DAY
     Route: 048
  6. BYETTA [Suspect]
     Active Substance: EXENATIDE
     Dosage: 5 MCG, 0.02 ML PEN; UNKNOWN
     Route: 065
     Dates: start: 20061130, end: 200910
  7. K-DUR [Concomitant]
     Active Substance: POTASSIUM CHLORIDE
     Route: 048
  8. COLCHICINE. [Concomitant]
     Active Substance: COLCHICINE
  9. UNITHROID [Concomitant]
     Active Substance: LEVOTHYROXINE SODIUM
  10. FUROSEMIDE. [Concomitant]
     Active Substance: FUROSEMIDE
     Dosage: TABS  2 AT DAY   1 AT NIGHT; 80 MG; THREE TIMES A DAY
     Route: 048
  11. ZYRTEC [Concomitant]
     Active Substance: CETIRIZINE HYDROCHLORIDE
     Route: 048
  12. LANTUS [Concomitant]
     Active Substance: INSULIN GLARGINE
     Dosage: 1DF=100 UNIT/ML  1DF=40 UNITS TWO TIMES A DAY
     Route: 058
  13. MULTIVITAMIN [Concomitant]
     Active Substance: VITAMINS

REACTIONS (4)
  - Jaundice [Unknown]
  - Bile duct obstruction [Unknown]
  - Cardio-respiratory arrest [Fatal]
  - Pancreatic carcinoma metastatic [Fatal]

NARRATIVE: CASE EVENT DATE: 20120329
